FAERS Safety Report 14064100 (Version 2)
Quarter: 2018Q1

REPORT INFORMATION
  Report Type: Spontaneous
  Country: GB (occurrence: GB)
  Receive Date: 20171009
  Receipt Date: 20180122
  Transmission Date: 20180508
  Serious: Yes (Other)
  Sender: FDA-Public Use
  Company Number: GB-PFIZER INC-2017432038

PATIENT
  Age: 20 Year
  Sex: Male

DRUGS (1)
  1. PANTOPRAZOLE [Suspect]
     Active Substance: PANTOPRAZOLE
     Indication: ABDOMINAL PAIN
     Dosage: 40 MG, UNK
     Route: 042
     Dates: start: 20170425

REACTIONS (6)
  - Headache [Unknown]
  - Dyspnoea [Unknown]
  - Skin irritation [Unknown]
  - Cardiac arrest [Recovered/Resolved]
  - Anaphylactic shock [Unknown]
  - Flushing [Unknown]

NARRATIVE: CASE EVENT DATE: 20170425
